FAERS Safety Report 5044480-X (Version None)
Quarter: 2006Q3

REPORT INFORMATION
  Report Type: 
  Country: None (occurrence: None)
  Receive Date: 20060706
  Receipt Date: 20060518
  Transmission Date: 20061208
  Serious: Yes (Hospitalization)
  Sender: FDA-Public Use
  Company Number: JP-JPN-A200601640

PATIENT
  Age: 81 Year
  Sex: Female

DRUGS (1)
  1. PAXIL [Suspect]
     Indication: DEPRESSION
     Route: 048
     Dates: start: 20060427, end: 20060518

REACTIONS (4)
  - CONSTIPATION [None]
  - ILEUS [None]
  - NAUSEA [None]
  - PYREXIA [None]
